FAERS Safety Report 21508929 (Version 2)
Quarter: 2023Q1

REPORT INFORMATION
  Report Type: Spontaneous
  Country: JP (occurrence: None)
  Receive Date: 20221026
  Receipt Date: 20230317
  Transmission Date: 20230417
  Serious: Yes (Hospitalization)
  Sender: FDA-Public Use
  Company Number: 2021A816440

PATIENT
  Age: 26 Year
  Sex: Male
  Weight: 53 kg

DRUGS (17)
  1. FASENRA [Suspect]
     Active Substance: BENRALIZUMAB
     Indication: Asthma
     Route: 058
     Dates: start: 20200115, end: 20211110
  2. SYMBICORT [Concomitant]
     Active Substance: BUDESONIDE\FORMOTEROL FUMARATE DIHYDRATE
     Dosage: DOSE UNKNOWN
     Route: 055
     Dates: start: 2015
  3. LANSOPRAZOLE [Concomitant]
     Active Substance: LANSOPRAZOLE
     Route: 048
     Dates: start: 20150326
  4. ALFAROL [Concomitant]
     Active Substance: ALFACALCIDOL
     Route: 048
     Dates: start: 20150326
  5. ATOVAQUONE [Concomitant]
     Active Substance: ATOVAQUONE
     Route: 048
     Dates: start: 20150430
  6. TANKARU [Concomitant]
     Route: 048
     Dates: start: 20150326
  7. PREDONINE [Concomitant]
     Active Substance: PREDNISOLONE
     Dosage: DOSE UNKNOWN
     Route: 048
     Dates: start: 201502
  8. PREDONINE [Concomitant]
     Active Substance: PREDNISOLONE
     Route: 048
     Dates: start: 20150326
  9. PREDONINE [Concomitant]
     Active Substance: PREDNISOLONE
     Dosage: 5.0MG UNKNOWN
     Route: 048
     Dates: start: 20200408, end: 20201006
  10. PREDONINE [Concomitant]
     Active Substance: PREDNISOLONE
     Dosage: DOSE UNKNOWN UNKNOWN
     Route: 048
     Dates: start: 20201007, end: 20201222
  11. PREDONINE [Concomitant]
     Active Substance: PREDNISOLONE
     Dosage: 5.0MG UNKNOWN
     Route: 048
     Dates: start: 20201223, end: 20210126
  12. PREDONINE [Concomitant]
     Active Substance: PREDNISOLONE
     Dosage: DOSE UNKNOWN UNKNOWN
     Route: 048
     Dates: start: 20210127, end: 20210519
  13. PREDONINE [Concomitant]
     Active Substance: PREDNISOLONE
     Dosage: 6.0MG UNKNOWN
     Route: 048
     Dates: start: 20210520
  14. AMINO ACIDS, SOURCE UNSPECIFIED [Concomitant]
     Active Substance: AMINO ACIDS, SOURCE UNSPECIFIED
     Route: 048
     Dates: start: 20201028
  15. URSO [Concomitant]
     Active Substance: URSODIOL
     Route: 048
     Dates: start: 2009
  16. BIO-THREE [Concomitant]
     Active Substance: HERBALS
     Dosage: DOSE UNKNOWN
     Route: 048
     Dates: start: 2009
  17. ASACOL [Concomitant]
     Active Substance: MESALAMINE
     Route: 048
     Dates: start: 20101108

REACTIONS (5)
  - Pneumonia [Recovered/Resolved]
  - Neutralising antibodies [Unknown]
  - Condition aggravated [Recovered/Resolved]
  - Eosinophil count increased [Unknown]
  - Drug ineffective [Unknown]

NARRATIVE: CASE EVENT DATE: 20201007
